FAERS Safety Report 25949025 (Version 3)
Quarter: 2025Q4

REPORT INFORMATION
  Report Type: Report from Study
  Country: US (occurrence: US)
  Receive Date: 20251022
  Receipt Date: 20251113
  Transmission Date: 20260118
  Serious: Yes (Hospitalization, Other)
  Sender: MALLINCKRODT
  Company Number: US-MALLINCKRODT-MNK202506276

PATIENT
  Age: 78 Year
  Sex: Female

DRUGS (6)
  1. CORTICOTROPIN [Suspect]
     Active Substance: CORTICOTROPIN
     Indication: Polymyositis
     Route: 058
  2. CORTICOTROPIN [Suspect]
     Active Substance: CORTICOTROPIN
     Indication: Myopathy
  3. CORTICOTROPIN [Suspect]
     Active Substance: CORTICOTROPIN
     Indication: Myopathy
  4. CORTICOTROPIN [Suspect]
     Active Substance: CORTICOTROPIN
     Indication: Polymyositis
  5. CORTICOTROPIN [Suspect]
     Active Substance: CORTICOTROPIN
     Indication: Myopathy
  6. CORTICOTROPIN [Suspect]
     Active Substance: CORTICOTROPIN
     Indication: Myopathy

REACTIONS (11)
  - Gastric ulcer [Unknown]
  - Gastric haemorrhage [Unknown]
  - Back pain [Unknown]
  - Feeling abnormal [Not Recovered/Not Resolved]
  - Hyperaesthesia [Unknown]
  - Arthralgia [Unknown]
  - Fatigue [Unknown]
  - Rash [Unknown]
  - Weight increased [Unknown]
  - Increased appetite [Unknown]
  - Injection site haemorrhage [Unknown]

NARRATIVE: CASE EVENT DATE: 20250101
